FAERS Safety Report 7705816-1 (Version None)
Quarter: 2011Q3

REPORT INFORMATION
  Report Type: 
  Country: None (occurrence: None)
  Receive Date: 20110824
  Receipt Date: 20110812
  Transmission Date: 20111222
  Serious: Yes (Life-Threatening, Hospitalization, Other)
  Sender: FDA-Public Use
  Company Number: US-ELI_LILLY_AND_COMPANY-US201108004993

PATIENT
  Sex: Male

DRUGS (3)
  1. CYMBALTA [Suspect]
     Indication: MUSCULOSKELETAL PAIN
     Dosage: 30 MG, QD
     Dates: start: 20110701, end: 20110701
  2. FLUOXETINE [Concomitant]
  3. NUCYNTA [Concomitant]
     Dosage: UNK
     Dates: start: 20110701

REACTIONS (6)
  - AMNESIA [None]
  - HALLUCINATIONS, MIXED [None]
  - ABNORMAL BEHAVIOUR [None]
  - ABDOMINAL PAIN UPPER [None]
  - DEAFNESS BILATERAL [None]
  - DRUG INEFFECTIVE [None]
